FAERS Safety Report 13060733 (Version 1)
Quarter: 2016Q4

REPORT INFORMATION
  Report Type: Report from Study
  Country: JP (occurrence: JP)
  Receive Date: 20161225
  Receipt Date: 20161225
  Transmission Date: 20170207
  Serious: Yes (Other)
  Sender: FDA-Public Use
  Company Number: JP-ASTRAZENECA-2016SF33788

PATIENT
  Age: 73 Year
  Sex: Male
  Weight: 68 kg

DRUGS (11)
  1. DORNER [Concomitant]
     Active Substance: BERAPROST SODIUM
     Route: 048
  2. CYMBALTA [Concomitant]
     Active Substance: DULOXETINE HYDROCHLORIDE
     Route: 048
  3. REBAMIPIDE [Concomitant]
     Active Substance: REBAMIPIDE
     Dosage: 100.0MG AS REQUIRED
     Route: 048
  4. METFORMIN HYDROCHLORIDE. [Concomitant]
     Active Substance: METFORMIN HYDROCHLORIDE
     Indication: TYPE 2 DIABETES MELLITUS
     Route: 048
  5. AMARYL [Concomitant]
     Active Substance: GLIMEPIRIDE
     Indication: TYPE 2 DIABETES MELLITUS
     Route: 048
  6. VASOLAT [Concomitant]
     Route: 048
  7. LOXONIN [Concomitant]
     Active Substance: LOXOPROFEN SODIUM
     Dosage: 60 MG ONCE OR TWICE AS REQUIRED DAILY
     Route: 048
  8. SENNA [Concomitant]
     Active Substance: SENNA LEAF\SENNOSIDES\SENNOSIDES A AND B
     Dosage: 160.0MG AS REQUIRED
     Route: 048
  9. LIPITOR [Concomitant]
     Active Substance: ATORVASTATIN CALCIUM
     Route: 048
  10. FORXIGA [Suspect]
     Active Substance: DAPAGLIFLOZIN
     Indication: TYPE 2 DIABETES MELLITUS
     Route: 048
     Dates: start: 20151013
  11. PLAVIX [Concomitant]
     Active Substance: CLOPIDOGREL BISULFATE
     Route: 048

REACTIONS (4)
  - Back pain [Not Recovered/Not Resolved]
  - Angina pectoris [Not Recovered/Not Resolved]
  - Blood urine present [Recovered/Resolved]
  - Protein urine present [Not Recovered/Not Resolved]

NARRATIVE: CASE EVENT DATE: 20160112
